FAERS Safety Report 5378975-6 (Version None)
Quarter: 2007Q3

REPORT INFORMATION
  Report Type: 
  Country: None (occurrence: None)
  Receive Date: 20070705
  Receipt Date: 20070625
  Transmission Date: 20080115
  Serious: Yes (Death)
  Sender: FDA-Public Use
  Company Number: JP-BRISTOL-MYERS SQUIBB COMPANY-13826722

PATIENT
  Age: 70 Year
  Sex: Female

DRUGS (5)
  1. ARIPIPRAZOLE [Suspect]
     Indication: SCHIZOPHRENIA
     Dosage: 12MG/18MG
     Route: 048
     Dates: start: 20070104, end: 20070116
  2. HALOPERIDOL [Concomitant]
     Indication: SCHIZOPHRENIA
     Route: 065
     Dates: end: 20070123
  3. PEROSPIRONE [Concomitant]
     Indication: SCHIZOPHRENIA
     Route: 048
     Dates: start: 20060601, end: 20070123
  4. GLIMEPIRIDE [Concomitant]
     Indication: DIABETES MELLITUS
     Route: 048
     Dates: start: 20060124, end: 20070123
  5. BIPERIDEN HYDROCHLORIDE TAB [Concomitant]
     Indication: PARKINSONISM
     Route: 048
     Dates: end: 20070123

REACTIONS (1)
  - SUDDEN DEATH [None]
